FAERS Safety Report 20080423 (Version 1)
Quarter: 2021Q4

REPORT INFORMATION
  Report Type: Spontaneous
  Country: US (occurrence: None)
  Receive Date: 20211116
  Receipt Date: 20211116
  Transmission Date: 20220303
  Serious: Yes (Hospitalization)
  Sender: FDA-Public Use
  Company Number: None

PATIENT
  Age: 25 Year
  Sex: Female
  Weight: 63 kg

DRUGS (1)
  1. .DELTA.8-TETRAHYDROCANNABINOL\HERBALS [Suspect]
     Active Substance: .DELTA.8-TETRAHYDROCANNABINOL\HERBALS
     Indication: Nausea
     Dates: start: 20211021, end: 20211021

REACTIONS (15)
  - Euphoric mood [None]
  - Dizziness [None]
  - Muscle twitching [None]
  - Feeling abnormal [None]
  - Eye disorder [None]
  - Palpitations [None]
  - Vomiting [None]
  - Dysstasia [None]
  - Blood glucose increased [None]
  - Blood potassium decreased [None]
  - White blood cell count decreased [None]
  - Liver function test abnormal [None]
  - Fatigue [None]
  - Pain [None]
  - Nausea [None]

NARRATIVE: CASE EVENT DATE: 20211021
